FAERS Safety Report 23839802 (Version 1)
Quarter: 2024Q2

REPORT INFORMATION
  Report Type: Other
  Country: US (occurrence: None)
  Receive Date: 20240510
  Receipt Date: 20240510
  Transmission Date: 20240716
  Serious: Yes (Hospitalization)
  Sender: FDA-Public Use
  Company Number: US-ROCHE-3560704

PATIENT
  Age: 82 Year
  Sex: Female

DRUGS (3)
  1. ROZLYTREK [Suspect]
     Active Substance: ENTRECTINIB
     Indication: Lung neoplasm malignant
     Route: 065
  2. ROZLYTREK [Suspect]
     Active Substance: ENTRECTINIB
     Indication: Metastases to lymph nodes
  3. ROZLYTREK [Suspect]
     Active Substance: ENTRECTINIB
     Indication: Metastases to adrenals

REACTIONS (1)
  - Neoplasm malignant [Unknown]
